FAERS Safety Report 22657775 (Version 2)
Quarter: 2024Q1

REPORT INFORMATION
  Report Type: Report from Study
  Country: IT (occurrence: IT)
  Receive Date: 20230630
  Receipt Date: 20240322
  Transmission Date: 20240409
  Serious: Yes (Hospitalization, Other)
  Sender: FDA-Public Use
  Company Number: None

PATIENT
  Age: 11 Year
  Sex: Male
  Weight: 53 kg

DRUGS (3)
  1. CYCLOPHOSPHAMIDE [Suspect]
     Active Substance: CYCLOPHOSPHAMIDE
     Dosage: 2900 MG/DAY
     Route: 042
     Dates: start: 20230523, end: 20230524
  2. ETOPOSIDE [Suspect]
     Active Substance: ETOPOSIDE
     Dosage: 290 MG/DAY
     Route: 042
     Dates: start: 20230523, end: 20230525
  3. FILGRASTIM [Concomitant]
     Active Substance: FILGRASTIM
     Dosage: 0.1 MG/DAY, SUBCUTANEOUSLY FROM DAY 27/07 TO 31/05/23, 1 MG/DAY INTRAVENOUS FROM DAY 01/06 TO DAY 12
     Route: 065
     Dates: start: 20230527, end: 20230612

REACTIONS (5)
  - Hypogammaglobulinaemia [Not Recovered/Not Resolved]
  - Febrile neutropenia [Recovered/Resolved]
  - Klebsiella infection [Recovered/Resolved with Sequelae]
  - Pancytopenia [Recovered/Resolved]
  - Anaemia [Recovered/Resolved]

NARRATIVE: CASE EVENT DATE: 20230531
